FAERS Safety Report 5896836-0 (Version None)
Quarter: 2008Q3

REPORT INFORMATION
  Report Type: 
  Country: None (occurrence: None)
  Receive Date: 20080924
  Receipt Date: 20071126
  Transmission Date: 20090109
  Serious: Yes (Other)
  Sender: FDA-Public Use
  Company Number: US-BAYER-200714129BWH

PATIENT
  Sex: Male

DRUGS (2)
  1. AVELOX [Suspect]
     Indication: RESPIRATORY TRACT INFECTION
     Dosage: TOTAL DAILY DOSE: 400 MG  UNIT DOSE: 400 MG
     Route: 048
     Dates: start: 20071024, end: 20071024
  2. LISINOPRIL [Concomitant]
     Dosage: TOTAL DAILY DOSE: 10 MG

REACTIONS (9)
  - ANAPHYLACTIC REACTION [None]
  - FACE OEDEMA [None]
  - FLUSHING [None]
  - HYPOTENSION [None]
  - LARYNGEAL OEDEMA [None]
  - PRESYNCOPE [None]
  - PRURITUS [None]
  - RESPIRATORY DISORDER [None]
  - SWELLING [None]
